FAERS Safety Report 14374359 (Version 3)
Quarter: 2018Q1

REPORT INFORMATION
  Report Type: Spontaneous
  Country: US (occurrence: US)
  Receive Date: 20180111
  Receipt Date: 20180307
  Transmission Date: 20180509
  Serious: No
  Sender: FDA-Public Use
  Company Number: US-BIOGEN-2018BI00508674

PATIENT
  Sex: Male

DRUGS (3)
  1. TYSABRI [Suspect]
     Active Substance: NATALIZUMAB
     Indication: MULTIPLE SCLEROSIS
     Route: 065
     Dates: start: 20120727
  2. TYSABRI [Suspect]
     Active Substance: NATALIZUMAB
     Route: 042
  3. TYSABRI [Suspect]
     Active Substance: NATALIZUMAB
     Route: 042

REACTIONS (8)
  - Neuropathy peripheral [Unknown]
  - Memory impairment [Unknown]
  - Pain [Unknown]
  - Central nervous system lesion [Unknown]
  - Paraesthesia [Unknown]
  - Impaired work ability [Unknown]
  - Amnesia [Not Recovered/Not Resolved]
  - Prescribed underdose [Not Recovered/Not Resolved]
